FAERS Safety Report 12298659 (Version 1)
Quarter: 2016Q2

REPORT INFORMATION
  Report Type: Spontaneous
  Country: CN (occurrence: CN)
  Receive Date: 20160425
  Receipt Date: 20160425
  Transmission Date: 20160815
  Serious: Yes (Hospitalization)
  Sender: FDA-Public Use
  Company Number: CN-ROCHE-1744153

PATIENT
  Age: 74 Year
  Sex: Female
  Weight: 54 kg

DRUGS (5)
  1. DOXORUBICIN HYDROCHLORIDE. [Suspect]
     Active Substance: DOXORUBICIN HYDROCHLORIDE
     Indication: NON-HODGKIN^S LYMPHOMA
     Dosage: D1-D2 EVERY CYCLE
     Route: 041
     Dates: start: 20130531, end: 20141012
  2. PREDNISONE ACETATE [Suspect]
     Active Substance: PREDNISONE ACETATE
     Indication: NON-HODGKIN^S LYMPHOMA
     Dosage: D1-D5 EVERY CYCLE
     Route: 048
     Dates: start: 20130531, end: 20141015
  3. CYCLOPHOSPHAMIDE. [Concomitant]
     Active Substance: CYCLOPHOSPHAMIDE
     Indication: NON-HODGKIN^S LYMPHOMA
     Dosage: D1 OF EVERY CYCLE
     Route: 041
     Dates: start: 20130531, end: 20141011
  4. MABTHERA [Suspect]
     Active Substance: RITUXIMAB
     Indication: NON-HODGKIN^S LYMPHOMA
     Dosage: D0 EVERY CYCLE
     Route: 041
     Dates: start: 20130530, end: 20141010
  5. VINDESINE SULFATE [Concomitant]
     Active Substance: VINDESINE SULFATE
     Indication: NON-HODGKIN^S LYMPHOMA
     Dosage: D1 OF EVERY CYCLE
     Route: 041
     Dates: start: 20130531, end: 20141011

REACTIONS (3)
  - Pneumonia viral [Recovering/Resolving]
  - Emphysema [Recovering/Resolving]
  - Hepatitis B DNA increased [Recovering/Resolving]

NARRATIVE: CASE EVENT DATE: 20150311
